FAERS Safety Report 9915328 (Version 2)
Quarter: 2015Q4

REPORT INFORMATION
  Report Type: Report from Study
  Country: US (occurrence: US)
  Receive Date: 20140221
  Receipt Date: 20151118
  Transmission Date: 20160305
  Serious: Yes (Other)
  Sender: FDA-Public Use
  Company Number: US-ROCHE-1336859

PATIENT
  Age: 69 Year
  Sex: Female

DRUGS (12)
  1. AVASTIN [Suspect]
     Active Substance: BEVACIZUMAB
     Indication: PRODUCT USED FOR UNKNOWN INDICATION
     Route: 065
     Dates: start: 20110419
  2. LIPITOR [Concomitant]
     Active Substance: ATORVASTATIN CALCIUM
  3. CIPROFLOXACIN. [Concomitant]
     Active Substance: CIPROFLOXACIN
     Dosage: OD
     Route: 047
  4. PLAVIX [Concomitant]
     Active Substance: CLOPIDOGREL BISULFATE
  5. METFORMIN [Concomitant]
     Active Substance: METFORMIN HYDROCHLORIDE
  6. LUCENTIS [Suspect]
     Active Substance: RANIBIZUMAB
     Indication: DIABETIC RETINOPATHY
     Route: 050
  7. ZYMAR [Concomitant]
     Active Substance: GATIFLOXACIN
     Dosage: QID OD
     Route: 065
  8. ALOXI [Concomitant]
     Active Substance: PALONOSETRON HYDROCHLORIDE
     Dosage: GTT OD
     Route: 065
  9. LUCENTIS [Suspect]
     Active Substance: RANIBIZUMAB
     Indication: DIABETIC RETINAL OEDEMA
     Route: 050
     Dates: start: 20110301
  10. LIRAGLUTIDE [Concomitant]
     Active Substance: LIRAGLUTIDE
  11. DORZOLAMIDE [Concomitant]
     Active Substance: DORZOLAMIDE
     Dosage: BID OU
     Route: 065
  12. CLONIDINE. [Concomitant]
     Active Substance: CLONIDINE

REACTIONS (5)
  - Diabetic retinal oedema [Unknown]
  - Vision blurred [Unknown]
  - Eye pruritus [Unknown]
  - Foreign body sensation in eyes [Unknown]
  - Vitreous floaters [Unknown]

NARRATIVE: CASE EVENT DATE: 20110617
